FAERS Safety Report 4850388-2 (Version None)
Quarter: 2005Q4

REPORT INFORMATION
  Report Type: 
  Country: None (occurrence: None)
  Receive Date: 20051123
  Receipt Date: 20050929
  Transmission Date: 20060501
  Serious: No
  Sender: FDA-Public Use
  Company Number: 218179

PATIENT
  Age: 54 Year
  Sex: Male

DRUGS (1)
  1. RAPTIVA [Suspect]
     Indication: PSORIASIS
     Dosage: 0.9ML, 1/WEEK
     Dates: start: 20050101

REACTIONS (1)
  - PSORIATIC ARTHROPATHY [None]
